FAERS Safety Report 7551262-3 (Version None)
Quarter: 2011Q2

REPORT INFORMATION
  Report Type: 
  Country: None (occurrence: None)
  Receive Date: 20110616
  Receipt Date: 20110609
  Transmission Date: 20111010
  Serious: Yes (Death, Other)
  Sender: FDA-Public Use
  Company Number: PHHY2011DE51077

PATIENT
  Age: 37 Year

DRUGS (2)
  1. CYCLOSPORINE [Suspect]
     Indication: PROPHYLAXIS AGAINST GRAFT VERSUS HOST DISEASE
  2. PENTOSTATIN [Concomitant]

REACTIONS (2)
  - SEPSIS [None]
  - GRAFT VERSUS HOST DISEASE [None]
